FAERS Safety Report 26185123 (Version 1)
Quarter: 2025Q4

REPORT INFORMATION
  Report Type: Spontaneous
  Country: SA (occurrence: SA)
  Receive Date: 20251222
  Receipt Date: 20251222
  Transmission Date: 20260117
  Serious: Yes (Hospitalization, Other)
  Sender: MICRO LABS LIMITED
  Company Number: SA-MICRO LABS LIMITED-ML2025-06641

PATIENT
  Age: 62 Year
  Sex: Male

DRUGS (2)
  1. APIXABAN [Suspect]
     Active Substance: APIXABAN
     Indication: Cerebrovascular accident
     Route: 048
     Dates: start: 20210601, end: 20220402
  2. APIXABAN [Suspect]
     Active Substance: APIXABAN
     Indication: Cardiac ventricular thrombosis

REACTIONS (3)
  - Cardiac ventricular thrombosis [Recovered/Resolved]
  - Condition aggravated [Recovered/Resolved]
  - Cerebrovascular accident [Recovered/Resolved]
